FAERS Safety Report 17989228 (Version 1)
Quarter: 2020Q3

REPORT INFORMATION
  Report Type: Spontaneous
  Country: US (occurrence: US)
  Receive Date: 20200707
  Receipt Date: 20200707
  Transmission Date: 20201103
  Serious: Yes (Hospitalization)
  Sender: FDA-Public Use
  Company Number: US-MYLANLABS-2020M1060814

PATIENT
  Age: 78 Year
  Sex: Female

DRUGS (2)
  1. ARSENIC TRIOXIDE. [Suspect]
     Active Substance: ARSENIC TRIOXIDE
     Indication: ACUTE PROMYELOCYTIC LEUKAEMIA
     Dosage: UNK
     Route: 065
  2. TRETINOIN. [Suspect]
     Active Substance: TRETINOIN
     Indication: ACUTE PROMYELOCYTIC LEUKAEMIA
     Dosage: UNK
     Route: 065

REACTIONS (8)
  - Differentiation syndrome [Recovered/Resolved]
  - Myocardial necrosis [Recovered/Resolved]
  - Hypotension [Recovered/Resolved]
  - Pericardial effusion [Recovered/Resolved]
  - Acute myocardial infarction [Recovered/Resolved]
  - Coronary artery disease [Recovered/Resolved]
  - Pulmonary congestion [Recovered/Resolved]
  - Pleural effusion [Recovered/Resolved]
